FAERS Safety Report 7416348-2 (Version None)
Quarter: 2011Q2

REPORT INFORMATION
  Report Type: 
  Country: None (occurrence: None)
  Receive Date: 20110414
  Receipt Date: 20110409
  Transmission Date: 20111010
  Serious: Yes (Other)
  Sender: FDA-Public Use
  Company Number: US-ABBOTT-11P-163-0706239-00

PATIENT
  Sex: Female
  Weight: 81.72 kg

DRUGS (8)
  1. PREDNISONE [Concomitant]
     Indication: PRODUCT USED FOR UNKNOWN INDICATION
     Dosage: EVERY 10 DAYS WITH HUMIRA INJECTIONS
  2. HUMIRA [Suspect]
     Indication: RHEUMATOID ARTHRITIS
     Dates: start: 20050101
  3. VITAMIN D [Concomitant]
     Indication: VITAMIN SUPPLEMENTATION
  4. CALCIUM [Concomitant]
     Indication: MINERAL SUPPLEMENTATION
     Dosage: 1200-1500 DAILY
  5. MULTI-VITAMIN [Concomitant]
     Indication: VITAMIN SUPPLEMENTATION
  6. CARBAMAZEPINE [Concomitant]
     Indication: TRIGEMINAL NERVE DISORDER
  7. ASPIRIN [Concomitant]
     Indication: PROPHYLAXIS
  8. ARAVA [Concomitant]
     Indication: RHEUMATOID ARTHRITIS

REACTIONS (18)
  - HEADACHE [None]
  - NASOPHARYNGITIS [None]
  - ARTHRALGIA [None]
  - BREATH SOUNDS ABNORMAL [None]
  - TRIGEMINAL NEURALGIA [None]
  - RESPIRATORY TRACT CONGESTION [None]
  - SKIN BURNING SENSATION [None]
  - BLOOD CALCIUM DECREASED [None]
  - SNEEZING [None]
  - BUNION [None]
  - VIRAL INFECTION [None]
  - NASAL CONGESTION [None]
  - FOOT DEFORMITY [None]
  - RHINORRHOEA [None]
  - IMPAIRED HEALING [None]
  - SINUS CONGESTION [None]
  - VITAMIN D DECREASED [None]
  - SINUS DISORDER [None]
